FAERS Safety Report 17453958 (Version 1)
Quarter: 2020Q1

REPORT INFORMATION
  Report Type: Spontaneous
  Country: US (occurrence: US)
  Receive Date: 20200224
  Receipt Date: 20200224
  Transmission Date: 20200409
  Serious: No
  Sender: FDA-Public Use
  Company Number: US-ROCHE-2484364

PATIENT

DRUGS (2)
  1. BALOXAVIR MARBOXIL. [Suspect]
     Active Substance: BALOXAVIR MARBOXIL
     Indication: INFLUENZA
     Dosage: ONGOING:NO
     Route: 065
  2. ANTIBIOTIC (UNK INGREDIENTS) [Concomitant]

REACTIONS (1)
  - Rash [Unknown]
